FAERS Safety Report 23280375 (Version 1)
Quarter: 2023Q4

REPORT INFORMATION
  Report Type: Spontaneous
  Country: US (occurrence: US)
  Receive Date: 20231211
  Receipt Date: 20231211
  Transmission Date: 20240110
  Serious: No
  Sender: FDA-Public Use
  Company Number: US-SANDOZ-SDZ2023US065043

PATIENT
  Sex: Female

DRUGS (3)
  1. TRIAMCINOLONE ACETONIDE [Suspect]
     Active Substance: TRIAMCINOLONE ACETONIDE
     Indication: Dermatitis
     Dosage: UNK
     Route: 065
     Dates: start: 20231009
  2. TRIAMCINOLONE ACETONIDE [Suspect]
     Active Substance: TRIAMCINOLONE ACETONIDE
     Indication: Psoriasis
  3. VTAMA [Concomitant]
     Active Substance: TAPINAROF
     Indication: Product used for unknown indication
     Route: 065

REACTIONS (3)
  - Seborrhoeic keratosis [Unknown]
  - Psoriasis [Unknown]
  - Drug ineffective [Unknown]
